FAERS Safety Report 22214630 (Version 3)
Quarter: 2023Q2

REPORT INFORMATION
  Report Type: Report from Study
  Country: CO (occurrence: CO)
  Receive Date: 20230415
  Receipt Date: 20230606
  Transmission Date: 20230721
  Serious: Yes (Hospitalization, Other)
  Sender: FDA-Public Use
  Company Number: CO-ABBVIE-4726340

PATIENT
  Sex: Male
  Weight: 64 kg

DRUGS (6)
  1. HUMIRA [Suspect]
     Active Substance: ADALIMUMAB
     Indication: Colitis ulcerative
     Route: 058
     Dates: start: 20221207, end: 20230406
  2. MESALAMINE [Concomitant]
     Active Substance: MESALAMINE
     Indication: Gastrointestinal inflammation
     Dosage: 2 GRAM
     Route: 048
     Dates: start: 2023
  3. MESALAMINE [Concomitant]
     Active Substance: MESALAMINE
     Indication: Gastrointestinal inflammation
     Dosage: 2 TABLET
     Route: 048
     Dates: start: 2020, end: 2023
  4. PREDNISOLONE [Suspect]
     Active Substance: PREDNISOLONE
     Indication: Gastrointestinal inflammation
     Dosage: DOSE TEXT: 1 TABLET?START DATE TEXT: AFTER HUMIRA
     Route: 048
  5. PREDNISOLONE [Suspect]
     Active Substance: PREDNISOLONE
     Indication: Gastrointestinal inflammation
     Dosage: FREQUENCY TEXT: FOR 7 DAYS POST-HOSPITALIZATION?START DATE TEXT: AFTER HUMIRA
     Route: 048
  6. AZATHIOPRINE [Concomitant]
     Active Substance: AZATHIOPRINE
     Indication: Colitis ulcerative
     Dosage: 1 TABLET
     Route: 048
     Dates: start: 2020

REACTIONS (18)
  - Colitis ulcerative [Recovering/Resolving]
  - Gait disturbance [Not Recovered/Not Resolved]
  - Flatulence [Recovering/Resolving]
  - Throat irritation [Not Recovered/Not Resolved]
  - Arthritis [Not Recovered/Not Resolved]
  - Lung disorder [Not Recovered/Not Resolved]
  - Pneumonia fungal [Recovering/Resolving]
  - Dyspnoea [Not Recovered/Not Resolved]
  - Thrombosis [Recovering/Resolving]
  - Abdominal discomfort [Recovering/Resolving]
  - Testicular pain [Not Recovered/Not Resolved]
  - Gastrointestinal inflammation [Recovering/Resolving]
  - Orchitis noninfective [Not Recovered/Not Resolved]
  - Bacterial infection [Recovering/Resolving]
  - Testicular atrophy [Not Recovered/Not Resolved]
  - Rectal haemorrhage [Recovered/Resolved]
  - Dysstasia [Not Recovered/Not Resolved]
  - Pharyngeal inflammation [Not Recovered/Not Resolved]

NARRATIVE: CASE EVENT DATE: 20230101
